FAERS Safety Report 4513384-0 (Version None)
Quarter: 2004Q4

REPORT INFORMATION
  Report Type: 
  Country: None (occurrence: None)
  Receive Date: 20041130
  Receipt Date: 20040902
  Transmission Date: 20050328
  Serious: No
  Sender: FDA-Public Use
  Company Number: US-BRISTOL-MYERS SQUIBB COMPANY-12691234

PATIENT
  Age: 34 Year
  Sex: Male
  Weight: 53 kg

DRUGS (15)
  1. ERBITUX [Suspect]
     Indication: COLORECTAL CANCER METASTATIC
     Route: 042
  2. BENADRYL [Concomitant]
     Indication: PREMEDICATION
     Route: 042
  3. ZANTAC [Concomitant]
     Indication: PREMEDICATION
     Route: 042
  4. SOLU-CORTEF [Concomitant]
     Indication: PREMEDICATION
     Route: 042
  5. ANZEMET [Concomitant]
     Indication: PREMEDICATION
     Route: 042
  6. DECADRON [Concomitant]
     Indication: PREMEDICATION
     Route: 042
  7. COUMADIN [Concomitant]
  8. AMBIEN [Concomitant]
  9. DURAGESIC [Concomitant]
  10. ATIVAN [Concomitant]
  11. LEXAPRO [Concomitant]
  12. DILAUDID [Concomitant]
  13. MEGACE [Concomitant]
  14. FERROUS SULFATE TAB [Concomitant]
  15. PROCRIT [Concomitant]

REACTIONS (3)
  - ACNE [None]
  - DRY SKIN [None]
  - HYPOAESTHESIA [None]
